FAERS Safety Report 12189535 (Version 3)
Quarter: 2016Q2

REPORT INFORMATION
  Report Type: Report from Study
  Country: JP (occurrence: JP)
  Receive Date: 20160318
  Receipt Date: 20160511
  Transmission Date: 20160815
  Serious: Yes (Hospitalization)
  Sender: FDA-Public Use
  Company Number: JP-TAKEDA-2016TJP005254

PATIENT
  Age: 35 Year
  Sex: Female
  Weight: 61 kg

DRUGS (30)
  1. PROMAC                             /01312301/ [Concomitant]
     Active Substance: NITROFURANTOIN
     Indication: CROHN^S DISEASE
     Dosage: 75 MG, BID
     Route: 048
     Dates: start: 20150503, end: 20160311
  2. REBAMIPIDE [Concomitant]
     Active Substance: REBAMIPIDE
     Indication: CROHN^S DISEASE
     Dosage: 100 MG, TID
     Route: 048
     Dates: start: 20150503, end: 20160311
  3. REBAMIPIDE [Concomitant]
     Active Substance: REBAMIPIDE
     Dosage: 100 MG, TID
     Route: 048
     Dates: start: 20160316
  4. PENTASA [Concomitant]
     Active Substance: MESALAMINE
     Indication: CROHN^S DISEASE
     Dosage: 1 G, TID
     Route: 048
     Dates: start: 20150503, end: 20160311
  5. IMURAN [Concomitant]
     Active Substance: AZATHIOPRINE
     Indication: CROHN^S DISEASE
     Dosage: 100 MG, QD
     Route: 048
     Dates: start: 20150503, end: 20160311
  6. ELENTAL [Concomitant]
     Active Substance: AMINO ACIDS\CARBOHYDRATES\MINERALS\SOYBEAN OIL\VITAMINS
     Indication: CROHN^S DISEASE
     Dosage: 900 DF, QD
     Route: 048
     Dates: start: 20150604, end: 20160311
  7. DAIKENCHUTO [Concomitant]
     Active Substance: HERBALS
     Dosage: 2 DF, TID
     Route: 048
     Dates: start: 20160316
  8. RINDERON VG [Concomitant]
     Active Substance: BETAMETHASONE VALERATE\GENTAMICIN SULFATE
     Indication: RHINITIS ALLERGIC
     Dosage: UNK
     Route: 062
     Dates: start: 20151201
  9. VEDOLIZUMAB [Suspect]
     Active Substance: VEDOLIZUMAB
     Indication: CROHN^S DISEASE
     Dosage: 300 MG, UNK
     Route: 041
     Dates: start: 20140524, end: 20160312
  10. PENTASA [Concomitant]
     Active Substance: MESALAMINE
     Dosage: 1 G, TID
     Route: 048
     Dates: start: 20160316
  11. MIYA-BM [Concomitant]
     Active Substance: CLOSTRIDIUM BUTYRICUM SPORES STRAIN M-55
     Dosage: 2 DF, TID
     Route: 048
     Dates: start: 20160316
  12. MAGNESIUM OXIDE. [Concomitant]
     Active Substance: MAGNESIUM OXIDE
     Indication: PROPHYLAXIS
     Dosage: 2 DF, TID
     Route: 048
     Dates: start: 20150501, end: 20160311
  13. ALLERMIST [Concomitant]
     Active Substance: FLUTICASONE FUROATE
     Indication: RHINITIS ALLERGIC
     Dosage: UNK
     Route: 045
     Dates: start: 20151201
  14. MIYA-BM [Concomitant]
     Active Substance: CLOSTRIDIUM BUTYRICUM SPORES STRAIN M-55
     Indication: CROHN^S DISEASE
     Dosage: 2 DF, TID
     Route: 048
     Dates: start: 20150503, end: 20160311
  15. DAIKENCHUTO [Concomitant]
     Active Substance: HERBALS
     Indication: PROPHYLAXIS
     Dosage: 2 DF, TID
     Route: 048
     Dates: start: 20150503, end: 20160311
  16. IMURAN [Concomitant]
     Active Substance: AZATHIOPRINE
     Dosage: 100 MG, QD
     Route: 048
     Dates: start: 20160316
  17. LEXAPRO [Concomitant]
     Active Substance: ESCITALOPRAM OXALATE
     Indication: DEPRESSIVE SYMPTOM
     Dosage: 10 MG, QD
     Route: 048
     Dates: start: 20160130, end: 20160311
  18. SP TROCHES [Concomitant]
     Indication: CROHN^S DISEASE
     Dosage: UNK
     Route: 060
     Dates: start: 20150515, end: 20160311
  19. ELENTAL [Concomitant]
     Active Substance: AMINO ACIDS\CARBOHYDRATES\MINERALS\SOYBEAN OIL\VITAMINS
     Dosage: UNK
     Route: 048
     Dates: start: 20160316
  20. CALONAL [Concomitant]
     Active Substance: ACETAMINOPHEN
     Indication: CROHN^S DISEASE
     Dosage: 400 MG, UNK
     Route: 048
     Dates: end: 20160311
  21. NEXIUM [Concomitant]
     Active Substance: ESOMEPRAZOLE MAGNESIUM
     Indication: PROPHYLAXIS
     Dosage: 20 MG, QD
     Route: 048
     Dates: start: 20150503, end: 20160311
  22. SINGULAIR [Concomitant]
     Active Substance: MONTELUKAST SODIUM
     Indication: RHINITIS ALLERGIC
     Dosage: 10 MG, QD
     Route: 048
     Dates: start: 20151222, end: 20160311
  23. CARBOCISTEINE [Concomitant]
     Active Substance: CARBOCYSTEINE
     Indication: RHINITIS ALLERGIC
     Dosage: 500 MG, TID
     Route: 048
     Dates: start: 20160116, end: 20160311
  24. ALPRAZOLAM. [Concomitant]
     Active Substance: ALPRAZOLAM
     Indication: DEPRESSIVE SYMPTOM
     Dosage: 0.4 MG, QD
     Route: 048
     Dates: start: 20160206, end: 20160311
  25. PROMAC                             /01312301/ [Concomitant]
     Active Substance: NITROFURANTOIN
     Dosage: 75 MG, BID
     Route: 048
     Dates: start: 20160316
  26. POSTERISAN FORTE                   /01567801/ [Concomitant]
     Indication: CROHN^S DISEASE
     Dosage: 2 UNK, UNK
     Route: 062
     Dates: start: 20140329
  27. NEXIUM [Concomitant]
     Active Substance: ESOMEPRAZOLE MAGNESIUM
     Dosage: 20 MG, QD
     Route: 048
     Dates: start: 20160316
  28. PLACEBO [Suspect]
     Active Substance: UNSPECIFIED INGREDIENT
     Indication: CROHN^S DISEASE
     Dosage: MLN0002 300MG OR PLACEBO
     Route: 041
     Dates: start: 20140315
  29. KENALOG [Concomitant]
     Active Substance: TRIAMCINOLONE ACETONIDE
     Indication: CROHN^S DISEASE
     Dosage: UNK
     Route: 062
     Dates: start: 20140802
  30. FEXOFENADINE HYDROCHLORIDE. [Concomitant]
     Active Substance: FEXOFENADINE HYDROCHLORIDE
     Indication: RHINITIS ALLERGIC
     Dosage: 60 MG, BID
     Route: 048
     Dates: start: 20150926, end: 20160311

REACTIONS (1)
  - Large intestinal stenosis [Recovered/Resolved]

NARRATIVE: CASE EVENT DATE: 20160311
